FAERS Safety Report 11771634 (Version 2)
Quarter: 2015Q4

REPORT INFORMATION
  Report Type: Spontaneous
  Country: JP (occurrence: JP)
  Receive Date: 20151124
  Receipt Date: 20151224
  Transmission Date: 20160304
  Serious: Yes (Hospitalization)
  Sender: FDA-Public Use
  Company Number: JP-SUN PHARMACEUTICAL INDUSTRIES LTD-2015RR-106553

PATIENT

DRUGS (7)
  1. MIDAZOLAM [Suspect]
     Active Substance: MIDAZOLAM\MIDAZOLAM HYDROCHLORIDE
     Indication: MUSCLE SPASMS
     Dosage: 5 UNK, UNK
     Route: 065
  2. DANTROLENE [Suspect]
     Active Substance: DANTROLENE
     Indication: MUSCLE SPASMS
     Dosage: 75 MG/H, UNK
     Route: 065
  3. MAGNESIUM SULFATE. [Suspect]
     Active Substance: MAGNESIUM SULFATE
     Indication: MUSCLE SPASMS
     Dosage: 5 MEQ/H, UNK
     Route: 065
  4. DIAZEPAM. [Suspect]
     Active Substance: DIAZEPAM
     Indication: SEIZURE
     Route: 065
  5. PROPOFOL. [Suspect]
     Active Substance: PROPOFOL
     Indication: SEIZURE
     Route: 065
  6. MORPHINE [Suspect]
     Active Substance: MORPHINE
     Indication: MUSCLE SPASMS
     Dosage: 2 UNK, UNK
     Route: 065
  7. ROCURONIUM [Suspect]
     Active Substance: ROCURONIUM BROMIDE
     Indication: MUSCLE SPASMS
     Dosage: 5 ?G/KG/MIN, UNK
     Route: 065

REACTIONS (2)
  - Cheyne-Stokes respiration [Unknown]
  - Hypoventilation [Recovering/Resolving]
